FAERS Safety Report 8370044-6 (Version None)
Quarter: 2012Q2

REPORT INFORMATION
  Report Type: 
  Country: None (occurrence: None)
  Receive Date: 20120518
  Receipt Date: 20120515
  Transmission Date: 20120825
  Serious: Yes (Other)
  Sender: FDA-Public Use
  Company Number: PHHY2012AU042300

PATIENT
  Sex: Female

DRUGS (1)
  1. ZOLEDRONOC ACID [Suspect]
     Dosage: 5 MG/100ML , UNK
     Route: 042
     Dates: start: 20110608

REACTIONS (2)
  - PSYCHIATRIC SYMPTOM [None]
  - FALL [None]
